FAERS Safety Report 6905162-X (Version None)
Quarter: 2010Q3

REPORT INFORMATION
  Report Type: 
  Country: None (occurrence: None)
  Receive Date: 20100804
  Receipt Date: 20091021
  Transmission Date: 20110219
  Serious: No
  Sender: FDA-Public Use
  Company Number: US-PFIZER INC-2009229055

PATIENT
  Sex: Male
  Weight: 81.633 kg

DRUGS (3)
  1. LYRICA [Suspect]
     Indication: BACK PAIN
     Dosage: 75 MG, 2X/DAY
     Dates: start: 20090615, end: 20090824
  2. LYRICA [Suspect]
     Indication: PAIN IN EXTREMITY
  3. PLAVIX [Concomitant]
     Dosage: UNK

REACTIONS (5)
  - DISORIENTATION [None]
  - DIZZINESS [None]
  - NAUSEA [None]
  - NEURALGIA [None]
  - SPEECH DISORDER [None]
